FAERS Safety Report 6992271-2 (Version None)
Quarter: 2010Q3

REPORT INFORMATION
  Report Type: 
  Country: None (occurrence: None)
  Receive Date: 20100915
  Receipt Date: 20100915
  Transmission Date: 20110219
  Serious: Yes (Other)
  Sender: FDA-Public Use
  Company Number: None

PATIENT
  Age: 80 Year
  Sex: Female
  Weight: 77.1115 kg

DRUGS (3)
  1. VYTORIN [Suspect]
     Indication: BLOOD CHOLESTEROL INCREASED
     Dosage: 1 TABLET 1X DAY PO
     Route: 048
     Dates: start: 20100805, end: 20100810
  2. VYTORIN [Suspect]
     Indication: HYPERTENSION
     Dosage: 1 TABLET 1X DAY PO
     Route: 048
     Dates: start: 20100805, end: 20100810
  3. VYTORIN [Suspect]
     Indication: MYOCARDIAL INFARCTION
     Dosage: 1 TABLET 1X DAY PO
     Route: 048
     Dates: start: 20100805, end: 20100810

REACTIONS (3)
  - INFLAMMATION [None]
  - MOTOR DYSFUNCTION [None]
  - PAIN [None]
